FAERS Safety Report 10997635 (Version 1)
Quarter: 2015Q2

REPORT INFORMATION
  Report Type: Spontaneous
  Country: US (occurrence: US)
  Receive Date: 20150408
  Receipt Date: 20150408
  Transmission Date: 20150821
  Serious: Yes (Hospitalization, Other)
  Sender: FDA-Public Use
  Company Number: US-AMGEN-USASP2015032858

PATIENT
  Age: 75 Year
  Sex: Female

DRUGS (1)
  1. ENBREL [Suspect]
     Active Substance: ETANERCEPT
     Indication: PRODUCT USED FOR UNKNOWN INDICATION
     Dosage: MG, UNK
     Route: 065

REACTIONS (6)
  - Sepsis [Recovered/Resolved]
  - Panic attack [Unknown]
  - Hypersensitivity [Unknown]
  - Urinary tract infection [Recovered/Resolved]
  - Arthritis [Unknown]
  - Bursitis [Unknown]
